FAERS Safety Report 21334444 (Version 3)
Quarter: 2022Q3

REPORT INFORMATION
  Report Type: Spontaneous
  Country: FR (occurrence: FR)
  Receive Date: 20220914
  Receipt Date: 20220930
  Transmission Date: 20221026
  Serious: Yes (Other)
  Sender: FDA-Public Use
  Company Number: FR-ALLERGAN-2229914US

PATIENT
  Sex: Male

DRUGS (1)
  1. BIMATOPROST\TIMOLOL MALEATE [Suspect]
     Active Substance: BIMATOPROST\TIMOLOL MALEATE
     Indication: Open angle glaucoma
     Dosage: UNK
     Route: 047

REACTIONS (2)
  - Corneal toxicity [Unknown]
  - Punctate keratitis [Recovered/Resolved]
